FAERS Safety Report 19167461 (Version 1)
Quarter: 2021Q2

REPORT INFORMATION
  Report Type: Spontaneous
  Country: US (occurrence: US)
  Receive Date: 20210421
  Receipt Date: 20210421
  Transmission Date: 20210717
  Serious: Yes (Other)
  Sender: FDA-Public Use
  Company Number: None

PATIENT
  Age: 24 Year
  Sex: Female
  Weight: 69.75 kg

DRUGS (1)
  1. AIMOVIG [Suspect]
     Active Substance: ERENUMAB-AOOE
     Indication: MIGRAINE
     Dosage: ?          OTHER ROUTE:INJECTION TO THIGH?
     Dates: start: 20200423, end: 20200923

REACTIONS (2)
  - Injection site mass [None]
  - Anaphylactic reaction [None]

NARRATIVE: CASE EVENT DATE: 20201023
